FAERS Safety Report 4344493-7 (Version None)
Quarter: 2004Q2

REPORT INFORMATION
  Report Type: 
  Country: None (occurrence: None)
  Receive Date: 20040419
  Receipt Date: 20040123
  Transmission Date: 20050107
  Serious: Yes (Other)
  Sender: FDA-Public Use
  Company Number: A-CH2003-04033

PATIENT
  Age: 68 Year
  Sex: Female

DRUGS (6)
  1. TRACLEER [Suspect]
     Indication: PULMONARY HYPERTENSION
     Dosage: SEE IMAGE
     Route: 048
     Dates: start: 20030324, end: 20031127
  2. TRACLEER [Suspect]
     Indication: PULMONARY HYPERTENSION
     Dosage: SEE IMAGE
     Route: 048
     Dates: start: 20031201
  3. LASIX [Concomitant]
  4. ALLOPURINOL [Concomitant]
  5. OMEPRAZOLE [Concomitant]
  6. EMOLLENTS AND PROTECTIVES [Concomitant]

REACTIONS (1)
  - ECZEMA [None]
